FAERS Safety Report 6868440-9 (Version None)
Quarter: 2010Q3

REPORT INFORMATION
  Report Type: 
  Country: None (occurrence: None)
  Receive Date: 20100722
  Receipt Date: 20080527
  Transmission Date: 20110219
  Serious: No
  Sender: FDA-Public Use
  Company Number: US-PFIZER INC-2008045850

PATIENT
  Sex: Male
  Weight: 77.11 kg

DRUGS (7)
  1. CHANTIX [Suspect]
     Indication: SMOKING CESSATION THERAPY
     Dates: start: 20070901, end: 20071101
  2. ZOCOR [Concomitant]
  3. PLAVIX [Concomitant]
  4. ATENOLOL [Concomitant]
  5. LISINOPRIL [Concomitant]
  6. SYMBICORT [Concomitant]
  7. ALBUTEROL [Concomitant]

REACTIONS (2)
  - ABNORMAL DREAMS [None]
  - CONSTIPATION [None]
